FAERS Safety Report 9255773 (Version 1)
Quarter: 2013Q2

REPORT INFORMATION
  Report Type: Spontaneous
  Country: US (occurrence: US)
  Receive Date: 20130425
  Receipt Date: 20130425
  Transmission Date: 20140414
  Serious: Yes (Life-Threatening, Other)
  Sender: FDA-Public Use
  Company Number: US-BANPHARM-20131216

PATIENT
  Age: 32 Year
  Sex: Female
  Weight: 113.4 kg

DRUGS (1)
  1. IBUPROFEN CAPSULES 200 MG [Suspect]
     Route: 048

REACTIONS (2)
  - Anaphylactic reaction [Recovered/Resolved]
  - Hypersensitivity [Recovered/Resolved]
